FAERS Safety Report 11411132 (Version 1)
Quarter: 2015Q3

REPORT INFORMATION
  Report Type: Spontaneous
  Country: US (occurrence: US)
  Receive Date: 20150821
  Receipt Date: 20150821
  Transmission Date: 20151125
  Serious: No
  Sender: FDA-Public Use
  Company Number: US-ELI_LILLY_AND_COMPANY-US201003004941

PATIENT
  Sex: Male

DRUGS (7)
  1. HUMULIN 70/30 [Suspect]
     Active Substance: INSULIN HUMAN
     Dosage: UNK, AS NEEDED
  2. HUMULIN 70/30 [Suspect]
     Active Substance: INSULIN HUMAN
     Indication: TYPE 2 DIABETES MELLITUS
     Dosage: 73 U, EACH MORNING
  3. HUMULIN 70/30 [Suspect]
     Active Substance: INSULIN HUMAN
     Dosage: 73 U, EACH EVENING
  4. HUMULIN 70/30 [Suspect]
     Active Substance: INSULIN HUMAN
     Dosage: UNK, AS NEEDED
  5. HUMULIN 70/30 [Suspect]
     Active Substance: INSULIN HUMAN
     Indication: TYPE 2 DIABETES MELLITUS
     Dosage: 73 U, 2/D
  6. NOVOLOG [Concomitant]
     Active Substance: INSULIN ASPART
     Dosage: UNK, AS NEEDED
  7. NOVOLOG [Concomitant]
     Active Substance: INSULIN ASPART
     Dosage: 12 U, DAILY (1/D)

REACTIONS (3)
  - Visual impairment [Not Recovered/Not Resolved]
  - Cataract [Unknown]
  - Cataract [Unknown]

NARRATIVE: CASE EVENT DATE: 2009
